FAERS Safety Report 4965532-6 (Version None)
Quarter: 2006Q1

REPORT INFORMATION
  Report Type: 
  Country: None (occurrence: None)
  Receive Date: 20060201
  Receipt Date: 20051207
  Transmission Date: 20060701
  Serious: No
  Sender: FDA-Public Use
  Company Number: 2005PV005572

PATIENT
  Age: 35 Year
  Sex: Female
  Weight: 151.0478 kg

DRUGS (3)
  1. BYETTA [Suspect]
     Indication: DIABETES MELLITUS NON-INSULIN-DEPENDENT
     Dosage: 10 MCG;BID;SC; 5 MCG;BID;SC
     Route: 058
     Dates: start: 20050601, end: 20050701
  2. BYETTA [Suspect]
     Indication: DIABETES MELLITUS NON-INSULIN-DEPENDENT
     Dosage: 10 MCG;BID;SC; 5 MCG;BID;SC
     Route: 058
     Dates: start: 20050718, end: 20051205
  3. METFORMIN [Concomitant]

REACTIONS (4)
  - NAUSEA [None]
  - PRURITUS GENERALISED [None]
  - URTICARIA [None]
  - WEIGHT DECREASED [None]
